FAERS Safety Report 25870670 (Version 3)
Quarter: 2025Q4

REPORT INFORMATION
  Report Type: Spontaneous
  Country: UY (occurrence: UY)
  Receive Date: 20251001
  Receipt Date: 20251202
  Transmission Date: 20260118
  Serious: No
  Sender: PFIZER
  Company Number: UY-PFIZER INC-202500189096

PATIENT
  Age: 9 Year
  Sex: Male

DRUGS (1)
  1. GENOTROPIN [Suspect]
     Active Substance: SOMATROPIN
     Indication: Growth hormone deficiency
     Dosage: 1.4 MG, DAILY (7 DAYS PER WEEK)
     Dates: start: 20180709

REACTIONS (2)
  - Device mechanical issue [Unknown]
  - Device information output issue [Unknown]
